FAERS Safety Report 5649154-X (Version None)
Quarter: 2008Q1

REPORT INFORMATION
  Report Type: 
  Country: None (occurrence: None)
  Receive Date: 20080304
  Receipt Date: 20080226
  Transmission Date: 20080703
  Serious: Yes (Other)
  Sender: FDA-Public Use
  Company Number: IE-WYE-G01151008

PATIENT
  Sex: Male

DRUGS (2)
  1. EFFEXOR XR [Suspect]
     Route: 048
     Dates: start: 20060101
  2. EFFEXOR XR [Suspect]
     Route: 048

REACTIONS (2)
  - CARDIAC DISORDER [None]
  - HYPERTENSION [None]
